FAERS Safety Report 7971096-5 (Version None)
Quarter: 2011Q4

REPORT INFORMATION
  Report Type: 
  Country: None (occurrence: None)
  Receive Date: 20111212
  Receipt Date: 20111212
  Transmission Date: 20120403
  Serious: No
  Sender: FDA-Public Use
  Company Number: None

PATIENT
  Sex: Female
  Weight: 68.038 kg

DRUGS (1)
  1. CYMBALTA [Suspect]
     Indication: NERVE INJURY
     Dosage: 30MG
     Route: 048

REACTIONS (17)
  - DIZZINESS [None]
  - DISORIENTATION [None]
  - FEELING ABNORMAL [None]
  - HEART RATE INCREASED [None]
  - INSOMNIA [None]
  - DIARRHOEA [None]
  - NAUSEA [None]
  - BACK PAIN [None]
  - BODY TEMPERATURE FLUCTUATION [None]
  - PANIC ATTACK [None]
  - ANGER [None]
  - NO THERAPEUTIC RESPONSE [None]
  - EMOTIONAL DISORDER [None]
  - WITHDRAWAL SYNDROME [None]
  - NIGHTMARE [None]
  - TACHYPHRENIA [None]
  - TREMOR [None]
